FAERS Safety Report 7039914-5 (Version None)
Quarter: 2010Q4

REPORT INFORMATION
  Report Type: 
  Country: None (occurrence: None)
  Receive Date: 20101012
  Receipt Date: 20100930
  Transmission Date: 20110411
  Serious: Yes (Other)
  Sender: FDA-Public Use
  Company Number: US-PFIZER INC-2010124914

PATIENT
  Sex: Female

DRUGS (1)
  1. VIAGRA [Suspect]

REACTIONS (5)
  - FLUID RETENTION [None]
  - HYPERSENSITIVITY [None]
  - INFLAMMATION [None]
  - OEDEMA PERIPHERAL [None]
  - WEIGHT INCREASED [None]
